FAERS Safety Report 8510882-X (Version None)
Quarter: 2012Q3

REPORT INFORMATION
  Report Type: 
  Country: None (occurrence: None)
  Receive Date: 20120709
  Receipt Date: 20120709
  Transmission Date: 20120928
  Serious: Yes (Hospitalization)
  Sender: FDA-Public Use
  Company Number: None

PATIENT
  Sex: Male
  Weight: 80.2 kg

DRUGS (4)
  1. VINBLASTINE SULFATE [Suspect]
     Dosage: 12 MG
  2. DACARBAZINE [Suspect]
     Dosage: 770 MG
  3. BLEOMYCIN SULFATE [Suspect]
     Dosage: 20 UNIT
  4. DOXORUBICIN HYDROCHLORIDE [Suspect]
     Dosage: 50 MG

REACTIONS (2)
  - WHITE BLOOD CELL COUNT DECREASED [None]
  - NEUTROPHIL COUNT DECREASED [None]
